FAERS Safety Report 21108811 (Version 3)
Quarter: 2022Q3

REPORT INFORMATION
  Report Type: Report from Study
  Country: US (occurrence: US)
  Receive Date: 20220721
  Receipt Date: 20220923
  Transmission Date: 20221027
  Serious: No
  Sender: FDA-Public Use
  Company Number: US-ABBVIE-22K-163-4474993-00

PATIENT
  Sex: Female

DRUGS (7)
  1. HUMIRA [Suspect]
     Active Substance: ADALIMUMAB
     Indication: Psoriatic arthropathy
     Route: 058
  2. HUMIRA [Suspect]
     Active Substance: ADALIMUMAB
     Route: 058
  3. OTEZLA [Concomitant]
     Active Substance: APREMILAST
     Indication: Product used for unknown indication
  4. OTEZLA [Concomitant]
     Active Substance: APREMILAST
     Indication: Product used for unknown indication
  5. PFIZER-BIONTECH COVID-19 VACCINE [Concomitant]
     Active Substance: TOZINAMERAN
     Indication: COVID-19 immunisation
     Dosage: FIRST DOSE (FREQUENCY- ONE IN ONCE)
     Route: 030
     Dates: start: 20210616, end: 20210616
  6. PFIZER-BIONTECH COVID-19 VACCINE [Concomitant]
     Active Substance: TOZINAMERAN
     Indication: COVID-19 immunisation
     Dosage: SECOND DOSE (FREQUENCY- ONE IN ONCE)
     Route: 030
     Dates: start: 20210820, end: 20210820
  7. PFIZER-BIONTECH COVID-19 VACCINE [Concomitant]
     Active Substance: TOZINAMERAN
     Indication: COVID-19 immunisation
     Dosage: THIRD DOSE OR BOOSTER DOSE (FREQUENCY- ONE IN ONCE)
     Route: 030
     Dates: start: 20211231, end: 20211231

REACTIONS (22)
  - Oxygen therapy [Unknown]
  - Diabetes mellitus [Unknown]
  - Adverse drug reaction [Recovering/Resolving]
  - Fibromyalgia [Unknown]
  - Rash [Recovering/Resolving]
  - Musculoskeletal stiffness [Unknown]
  - Musculoskeletal stiffness [Unknown]
  - Joint stiffness [Unknown]
  - Fatigue [Recovering/Resolving]
  - Depression [Recovering/Resolving]
  - Scab [Recovering/Resolving]
  - Carpal tunnel syndrome [Unknown]
  - Irritability [Unknown]
  - Anger [Unknown]
  - Feeling abnormal [Unknown]
  - Spinal stenosis [Unknown]
  - Exposure to toxic agent [Unknown]
  - Headache [Unknown]
  - Tremor [Unknown]
  - Hepatic enzyme abnormal [Unknown]
  - Therapeutic product effect incomplete [Unknown]
  - Arthralgia [Not Recovered/Not Resolved]

NARRATIVE: CASE EVENT DATE: 20120101
